FAERS Safety Report 4354940-2 (Version None)
Quarter: 2004Q2

REPORT INFORMATION
  Report Type: 
  Country: None (occurrence: None)
  Receive Date: 20040504
  Receipt Date: 20040323
  Transmission Date: 20050107
  Serious: Yes (Hospitalization)
  Sender: FDA-Public Use
  Company Number: 2004-DE-01462GD

PATIENT
  Sex: Female

DRUGS (5)
  1. ACETYLSALICYLIC ACID (NR) [Suspect]
     Indication: THROMBOTIC THROMBOCYTOPENIC PURPURA
     Dosage: 100 MG (NR); NR
  2. DIPYRIDAMOLE [Suspect]
     Indication: THROMBOTIC THROMBOCYTOPENIC PURPURA
     Dosage: 600 MG (NR) (NR)
  3. CORTICOSTEROIDS (CORTICOSTEROIDS) (NR) [Suspect]
     Indication: THROMBOTIC THROMBOCYTOPENIC PURPURA
     Dosage: 10 MG (NR) (NR)
  4. FOLIC ACID [Suspect]
     Indication: THROMBOTIC THROMBOCYTOPENIC PURPURA
     Dosage: 25 MG (NR) (NR)
  5. ... [Concomitant]

REACTIONS (4)
  - DISEASE RECURRENCE [None]
  - HAEMOLYTIC ANAEMIA [None]
  - THROMBOTIC THROMBOCYTOPENIC PURPURA [None]
  - VIRAL INFECTION [None]
